FAERS Safety Report 9835415 (Version 4)
Quarter: 2014Q1

REPORT INFORMATION
  Report Type: Spontaneous
  Country: JP (occurrence: JP)
  Receive Date: 20140122
  Receipt Date: 20140320
  Transmission Date: 20141002
  Serious: Yes (Other)
  Sender: FDA-Public Use
  Company Number: JP-OTSUKA-JP-2014-10094

PATIENT
  Age: 87 Year
  Sex: Male

DRUGS (7)
  1. SAMSCA [Suspect]
     Indication: CARDIAC FAILURE
     Dosage: 15 MG MILLIGRAM(S), DAILY DOSE
     Route: 048
     Dates: start: 20140105, end: 20140105
  2. FINIBAX [Concomitant]
     Indication: PNEUMONIA
     Dosage: 0.50 G GRAM(S), DAILY DOSE
     Route: 041
     Dates: start: 20140105, end: 20140110
  3. LASIX [Concomitant]
     Dosage: 40 MG MILLIGRAM(S), DAILY DOSE
     Route: 042
     Dates: start: 20140105, end: 20140105
  4. LASIX [Concomitant]
     Dosage: 60 MG MILLIGRAM(S), DAILY DOSE
     Route: 042
     Dates: start: 20140106, end: 20140106
  5. LASIX [Concomitant]
     Dosage: 80 MG MILLIGRAM(S), DAILY DOSE
     Route: 042
     Dates: start: 20140107
  6. HANP [Concomitant]
     Dosage: 1.728 MG MILLIGRAM(S), DAILY DOSE
     Route: 041
     Dates: start: 20140105
  7. ISOTONIC SODIUM CHLORIDE SOLUTION [Concomitant]
     Dosage: 100 ML MILLILITRE(S), BID
     Route: 041

REACTIONS (6)
  - Altered state of consciousness [Recovered/Resolved]
  - Hypernatraemia [Recovered/Resolved]
  - Restlessness [Unknown]
  - Thirst [Recovered/Resolved]
  - Dehydration [Unknown]
  - Pneumonia [Unknown]
